FAERS Safety Report 26003913 (Version 2)
Quarter: 2025Q4

REPORT INFORMATION
  Report Type: Spontaneous
  Country: US (occurrence: US)
  Receive Date: 20251106
  Receipt Date: 20251110
  Transmission Date: 20260117
  Serious: No
  Sender: SANOFI AVENTIS
  Company Number: US-SA-2025SA322109

PATIENT
  Age: 83 Year
  Sex: Male
  Weight: 73.016 kg

DRUGS (1)
  1. DUPIXENT [Suspect]
     Active Substance: DUPILUMAB
     Indication: Dermatitis atopic
     Dosage: 300 MG, QOW
     Dates: start: 20250201

REACTIONS (1)
  - Blister [Unknown]

NARRATIVE: CASE EVENT DATE: 20251024
